FAERS Safety Report 20690253 (Version 5)
Quarter: 2022Q3

REPORT INFORMATION
  Report Type: Report from Study
  Country: US (occurrence: US)
  Receive Date: 20220408
  Receipt Date: 20220625
  Transmission Date: 20221027
  Serious: Yes (Other)
  Sender: FDA-Public Use
  Company Number: NVSC2022US079328

PATIENT
  Sex: Female

DRUGS (1)
  1. ENTRESTO [Suspect]
     Active Substance: SACUBITRIL\VALSARTAN
     Indication: Cardiac failure
     Dosage: UNK UNK, BID
     Route: 048

REACTIONS (6)
  - Cerebrovascular accident [Unknown]
  - Asthenia [Unknown]
  - Heart rate decreased [Unknown]
  - Weight decreased [Unknown]
  - Decreased appetite [Unknown]
  - Hypotension [Unknown]
